FAERS Safety Report 9918199 (Version 3)
Quarter: 2014Q2

REPORT INFORMATION
  Report Type: Report from Study
  Country: DE (occurrence: DE)
  Receive Date: 20140223
  Receipt Date: 20140620
  Transmission Date: 20141212
  Serious: Yes (Hospitalization)
  Sender: FDA-Public Use
  Company Number: DE-ROCHE-1351888

PATIENT
  Age: 78 Year
  Sex: Female

DRUGS (20)
  1. TOCILIZUMAB [Suspect]
     Indication: RHEUMATOID ARTHRITIS
     Dosage: PATIENT ADMINISTERED DRUG ON 24/MAR/2009
     Route: 065
     Dates: start: 200903
  2. TOCILIZUMAB [Suspect]
     Dosage: PATTIENT ADMINISTERED DRUG ON 06/JUL/2009, 08/OCT/2009, 15/APR/2010, 23/AUG/2010 AND 24/FEB/2011
     Route: 065
     Dates: end: 201106
  3. TOCILIZUMAB [Suspect]
     Dosage: PATTIENT ADMINISTERED DRUG ON 27/FEB/2012, 10/SEP/2012 AND 04/MAR/2013
     Route: 065
     Dates: start: 201201
  4. AZATHIOPRINE [Suspect]
     Indication: RHEUMATOID ARTHRITIS
     Route: 065
  5. AZATHIOPRINE [Suspect]
     Dosage: WEEKS
     Route: 065
  6. LEVOTHYROXIN [Concomitant]
  7. VALORON (GERMANY) [Concomitant]
  8. PREDNISOLON [Concomitant]
  9. CALCIVIT D [Concomitant]
  10. ACICLOVIR [Concomitant]
  11. AMITRIPTYLINE [Concomitant]
  12. PANTOZOL (GERMANY) [Concomitant]
  13. CYNT (GERMANY) [Concomitant]
  14. DIGIMERCK [Concomitant]
  15. JODID [Concomitant]
  16. CONCOR [Concomitant]
  17. AMLODIPIN [Concomitant]
  18. TOREM [Concomitant]
  19. KALINOR [Concomitant]
  20. MARCUMAR [Concomitant]
     Route: 065

REACTIONS (2)
  - Polyneuropathy [Unknown]
  - Pneumonia respiratory syncytial viral [Recovered/Resolved]
